FAERS Safety Report 5009579-2 (Version None)
Quarter: 2006Q2

REPORT INFORMATION
  Report Type: 
  Country: None (occurrence: None)
  Receive Date: 20060524
  Receipt Date: 20060515
  Transmission Date: 20061013
  Serious: Yes (Hospitalization)
  Sender: FDA-Public Use
  Company Number: PHBS2006BR07255

PATIENT
  Age: 60 Year
  Sex: Female

DRUGS (1)
  1. ZELMAC [Suspect]
     Indication: DIVERTICULITIS
     Dosage: 6 MG, QOD
     Route: 048

REACTIONS (4)
  - ABDOMINAL DISTENSION [None]
  - ABDOMINAL PAIN [None]
  - DIARRHOEA [None]
  - DIVERTICULITIS [None]
